FAERS Safety Report 7921201-1 (Version None)
Quarter: 2011Q4

REPORT INFORMATION
  Report Type: 
  Country: None (occurrence: None)
  Receive Date: 20111117
  Receipt Date: 20111107
  Transmission Date: 20120403
  Serious: Yes (Hospitalization)
  Sender: FDA-Public Use
  Company Number: US-BAYER-2011-061746

PATIENT
  Age: 38 Year
  Sex: Female
  Weight: 85.714 kg

DRUGS (4)
  1. ASCORBIC ACID [Concomitant]
     Dosage: UNK UNK, PRN
  2. WOMAN+#8217;S DAILY VITAMINS [Concomitant]
     Dosage: UNK UNK, QD
     Dates: start: 20070101
  3. YAZ [Suspect]
     Indication: PREMENSTRUAL SYNDROME
     Dosage: UNK
     Dates: start: 20090401, end: 20091101
  4. NSAID'S [Concomitant]
     Dosage: UNK UNK, PRN

REACTIONS (9)
  - DEEP VEIN THROMBOSIS [None]
  - ANHEDONIA [None]
  - PULMONARY EMBOLISM [None]
  - ANXIETY [None]
  - CHEST PAIN [None]
  - PAIN [None]
  - DYSPNOEA [None]
  - FEAR [None]
  - PSYCHOLOGICAL TRAUMA [None]
